FAERS Safety Report 6793938-1 (Version None)
Quarter: 2010Q2

REPORT INFORMATION
  Report Type: 
  Country: None (occurrence: None)
  Receive Date: 20100624
  Receipt Date: 20040109
  Transmission Date: 20101027
  Serious: Yes (Death)
  Sender: FDA-Public Use
  Company Number: US-PFIZER INC-23100188

PATIENT
  Age: 63 Year
  Sex: Male

DRUGS (2)
  1. ARGATROBAN [Suspect]
     Route: 042
  2. ARGATROBAN [Suspect]
     Route: 042

REACTIONS (2)
  - HAEMORRHAGE [None]
  - THROMBOSIS [None]
